FAERS Safety Report 22076548 (Version 1)
Quarter: 2023Q1

REPORT INFORMATION
  Report Type: Report from Study
  Country: US (occurrence: US)
  Receive Date: 20230309
  Receipt Date: 20230309
  Transmission Date: 20230417
  Serious: Yes (Hospitalization, Other)
  Sender: FDA-Public Use
  Company Number: US-TAKEDA-US201603950

PATIENT
  Age: 42 Year
  Sex: Male

DRUGS (197)
  1. IDURSULFASE [Suspect]
     Active Substance: IDURSULFASE
     Indication: Mucopolysaccharidosis II
     Dosage: 0.5 MILLIGRAM/KILOGRAM, 1/WEEK
     Route: 041
     Dates: start: 20040302
  2. IDURSULFASE [Suspect]
     Active Substance: IDURSULFASE
     Dosage: 0.5 MILLIGRAM/KILOGRAM, 1/WEEK
     Route: 042
     Dates: start: 20111001, end: 20151029
  3. IBUPROFEN [Concomitant]
     Active Substance: IBUPROFEN
     Indication: Back pain
     Dosage: UNK
     Route: 048
     Dates: start: 20040301
  4. IBUPROFEN [Concomitant]
     Active Substance: IBUPROFEN
     Indication: Headache
     Dosage: UNK
     Route: 048
     Dates: start: 20090116, end: 20090116
  5. IBUPROFEN [Concomitant]
     Active Substance: IBUPROFEN
     Indication: Pain
     Dosage: UNK
     Route: 048
     Dates: start: 20090118, end: 20090118
  6. IBUPROFEN [Concomitant]
     Active Substance: IBUPROFEN
     Dosage: UNK
     Route: 048
     Dates: start: 20090126, end: 20090126
  7. IBUPROFEN [Concomitant]
     Active Substance: IBUPROFEN
     Dosage: UNK
  8. IBUPROFEN [Concomitant]
     Active Substance: IBUPROFEN
     Dosage: UNK
     Route: 048
     Dates: start: 20090205, end: 20090219
  9. IBUPROFEN [Concomitant]
     Active Substance: IBUPROFEN
     Dosage: UNK
     Route: 048
     Dates: start: 20090504, end: 20090504
  10. IBUPROFEN [Concomitant]
     Active Substance: IBUPROFEN
     Dosage: UNK
     Route: 048
     Dates: start: 20090701, end: 20090701
  11. IBUPROFEN [Concomitant]
     Active Substance: IBUPROFEN
     Dosage: UNK
     Route: 048
     Dates: start: 20090702, end: 20090702
  12. IBUPROFEN [Concomitant]
     Active Substance: IBUPROFEN
     Dosage: UNK
     Route: 048
     Dates: start: 20090703, end: 20090703
  13. IBUPROFEN [Concomitant]
     Active Substance: IBUPROFEN
     Dosage: UNK
     Route: 048
     Dates: start: 20090704, end: 20090704
  14. IBUPROFEN [Concomitant]
     Active Substance: IBUPROFEN
     Dosage: UNK
     Route: 048
     Dates: start: 20090706, end: 20090706
  15. IBUPROFEN [Concomitant]
     Active Substance: IBUPROFEN
     Dosage: UNK
     Route: 048
     Dates: start: 20090707, end: 20090707
  16. IBUPROFEN [Concomitant]
     Active Substance: IBUPROFEN
     Dosage: UNK
     Route: 048
     Dates: start: 20090708, end: 20090708
  17. IBUPROFEN [Concomitant]
     Active Substance: IBUPROFEN
     Dosage: UNK
     Route: 048
     Dates: start: 20090710, end: 20090710
  18. IBUPROFEN [Concomitant]
     Active Substance: IBUPROFEN
     Dosage: UNK
     Route: 048
     Dates: start: 20090711, end: 20090711
  19. IBUPROFEN [Concomitant]
     Active Substance: IBUPROFEN
     Dosage: UNK
     Route: 048
     Dates: start: 20090712, end: 20090712
  20. IBUPROFEN [Concomitant]
     Active Substance: IBUPROFEN
     Dosage: UNK
     Route: 048
     Dates: start: 20090713, end: 20090714
  21. IBUPROFEN [Concomitant]
     Active Substance: IBUPROFEN
     Dosage: UNK
     Route: 048
     Dates: start: 20090715, end: 20090715
  22. IBUPROFEN [Concomitant]
     Active Substance: IBUPROFEN
     Dosage: UNK
     Route: 048
     Dates: start: 20090718, end: 20090718
  23. IBUPROFEN [Concomitant]
     Active Substance: IBUPROFEN
     Dosage: UNK
     Route: 048
     Dates: start: 20090720, end: 20090724
  24. IBUPROFEN [Concomitant]
     Active Substance: IBUPROFEN
     Dosage: UNK
     Route: 048
     Dates: start: 20090722, end: 20090724
  25. IBUPROFEN [Concomitant]
     Active Substance: IBUPROFEN
     Dosage: UNK
     Route: 048
     Dates: start: 20090725, end: 20090725
  26. IBUPROFEN [Concomitant]
     Active Substance: IBUPROFEN
     Dosage: UNK
     Route: 048
     Dates: start: 20090730, end: 20090801
  27. IBUPROFEN [Concomitant]
     Active Substance: IBUPROFEN
     Dosage: UNK
     Route: 048
     Dates: start: 20090803, end: 20090803
  28. IBUPROFEN [Concomitant]
     Active Substance: IBUPROFEN
     Dosage: UNK
     Route: 048
     Dates: start: 20090806, end: 20090808
  29. IBUPROFEN [Concomitant]
     Active Substance: IBUPROFEN
     Dosage: UNK
     Route: 048
     Dates: start: 20090810, end: 20090811
  30. IBUPROFEN [Concomitant]
     Active Substance: IBUPROFEN
     Dosage: UNK
     Route: 048
     Dates: start: 20090816, end: 20090817
  31. Comtrex [Concomitant]
     Indication: Upper respiratory tract infection
     Dosage: UNK
     Route: 048
     Dates: start: 20090103, end: 20090103
  32. Comtrex [Concomitant]
     Dosage: UNK
     Route: 048
     Dates: start: 20090227, end: 20090227
  33. VICKS DAYQUIL [Concomitant]
     Active Substance: DEXTROMETHORPHAN HYDROBROMIDE\GUAIFENESIN
     Indication: Upper respiratory tract infection
     Dosage: UNK
     Route: 048
     Dates: start: 20090106, end: 20090120
  34. VICKS DAYQUIL [Concomitant]
     Active Substance: DEXTROMETHORPHAN HYDROBROMIDE\GUAIFENESIN
     Dosage: UNK
     Route: 048
     Dates: start: 20090228, end: 20090307
  35. VICKS DAYQUIL [Concomitant]
     Active Substance: DEXTROMETHORPHAN HYDROBROMIDE\GUAIFENESIN
     Dosage: UNK
     Route: 048
     Dates: start: 20090927, end: 20090927
  36. VICKS NYQUIL [Concomitant]
     Active Substance: ACETAMINOPHEN\DEXTROMETHORPHAN HYDROBROMIDE\DOXYLAMINE SUCCINATE
     Indication: Upper respiratory tract infection
     Dosage: UNK
     Route: 048
     Dates: start: 20090106, end: 20090120
  37. VICKS NYQUIL [Concomitant]
     Active Substance: ACETAMINOPHEN\DEXTROMETHORPHAN HYDROBROMIDE\DOXYLAMINE SUCCINATE
     Dosage: UNK
     Route: 048
     Dates: start: 20090228, end: 20090307
  38. VICKS NYQUIL [Concomitant]
     Active Substance: ACETAMINOPHEN\DEXTROMETHORPHAN HYDROBROMIDE\DOXYLAMINE SUCCINATE
     Dosage: UNK
     Route: 048
     Dates: start: 20090927, end: 20090928
  39. MOTRIN [Concomitant]
     Active Substance: IBUPROFEN
     Indication: Migraine
     Dosage: UNK
     Route: 048
     Dates: start: 20090302, end: 20090303
  40. MOTRIN [Concomitant]
     Active Substance: IBUPROFEN
     Indication: Headache
     Dosage: UNK
     Route: 048
     Dates: start: 20090411, end: 20090411
  41. MOTRIN [Concomitant]
     Active Substance: IBUPROFEN
     Dosage: UNK
     Dates: start: 20090415, end: 20090415
  42. MOTRIN [Concomitant]
     Active Substance: IBUPROFEN
     Dosage: UNK
     Route: 048
     Dates: start: 20090417, end: 20090417
  43. MOTRIN [Concomitant]
     Active Substance: IBUPROFEN
     Dosage: UNK
     Route: 048
     Dates: start: 20090422, end: 20090423
  44. MOTRIN [Concomitant]
     Active Substance: IBUPROFEN
     Dosage: UNK
     Route: 048
     Dates: start: 20090904, end: 20090904
  45. MOTRIN [Concomitant]
     Active Substance: IBUPROFEN
     Dosage: UNK
     Route: 048
     Dates: start: 20090911, end: 20090911
  46. MOTRIN [Concomitant]
     Active Substance: IBUPROFEN
     Dosage: UNK
     Route: 048
     Dates: start: 20090928, end: 20090928
  47. MOTRIN [Concomitant]
     Active Substance: IBUPROFEN
     Dosage: UNK
     Route: 048
     Dates: start: 20091130, end: 20091130
  48. MOTRIN [Concomitant]
     Active Substance: IBUPROFEN
     Dosage: UNK
     Route: 048
     Dates: start: 20091202, end: 20091202
  49. MOTRIN [Concomitant]
     Active Substance: IBUPROFEN
     Dosage: UNK
     Route: 048
     Dates: start: 20091230, end: 20091230
  50. MOTRIN [Concomitant]
     Active Substance: IBUPROFEN
     Dosage: UNK
     Route: 048
     Dates: start: 20100113, end: 20100113
  51. MOTRIN [Concomitant]
     Active Substance: IBUPROFEN
     Dosage: UNK
     Route: 048
     Dates: start: 20100120, end: 20100120
  52. MOTRIN [Concomitant]
     Active Substance: IBUPROFEN
     Dosage: UNK
     Route: 048
     Dates: start: 20100127, end: 20100127
  53. MOTRIN [Concomitant]
     Active Substance: IBUPROFEN
     Dosage: UNK
     Route: 048
     Dates: start: 20100131, end: 20100131
  54. MOTRIN [Concomitant]
     Active Substance: IBUPROFEN
     Dosage: UNK
     Route: 048
     Dates: start: 20100214, end: 20100214
  55. MOTRIN [Concomitant]
     Active Substance: IBUPROFEN
     Dosage: UNK
     Route: 048
     Dates: start: 20100327, end: 20100327
  56. MOTRIN [Concomitant]
     Active Substance: IBUPROFEN
     Dosage: UNK
     Route: 048
     Dates: start: 20100409, end: 20100409
  57. MOTRIN [Concomitant]
     Active Substance: IBUPROFEN
     Dosage: UNK
     Route: 048
     Dates: start: 20100413, end: 20100413
  58. MOTRIN [Concomitant]
     Active Substance: IBUPROFEN
     Dosage: UNK
     Route: 048
     Dates: start: 20100416, end: 20100416
  59. MOTRIN [Concomitant]
     Active Substance: IBUPROFEN
     Dosage: UNK
     Route: 048
     Dates: start: 20100418, end: 20100418
  60. MOTRIN [Concomitant]
     Active Substance: IBUPROFEN
     Dosage: UNK
     Route: 048
     Dates: start: 20100423, end: 20100423
  61. MOTRIN [Concomitant]
     Active Substance: IBUPROFEN
     Dosage: UNK
     Route: 048
     Dates: start: 20100425, end: 20100425
  62. MOTRIN [Concomitant]
     Active Substance: IBUPROFEN
     Dosage: UNK
     Route: 048
     Dates: start: 20100428, end: 20100428
  63. MOTRIN [Concomitant]
     Active Substance: IBUPROFEN
     Dosage: UNK
     Route: 048
     Dates: start: 20100430, end: 20100430
  64. MOTRIN [Concomitant]
     Active Substance: IBUPROFEN
     Dosage: UNK
     Route: 048
     Dates: start: 20100502, end: 20100502
  65. MOTRIN [Concomitant]
     Active Substance: IBUPROFEN
     Dosage: UNK
     Route: 048
     Dates: start: 20100523, end: 20100523
  66. MOTRIN [Concomitant]
     Active Substance: IBUPROFEN
     Dosage: UNK
     Route: 048
     Dates: start: 20100626, end: 20100627
  67. MOTRIN [Concomitant]
     Active Substance: IBUPROFEN
     Dosage: UNK
     Route: 048
     Dates: start: 20100830, end: 20100830
  68. PEPTO-BISMOL [Concomitant]
     Active Substance: BISMUTH SUBSALICYLATE
     Indication: Dyspepsia
     Dosage: UNK
     Route: 048
     Dates: start: 20090330, end: 20090330
  69. PEPTO-BISMOL [Concomitant]
     Active Substance: BISMUTH SUBSALICYLATE
     Dosage: UNK
     Route: 048
     Dates: start: 20090607, end: 20090607
  70. CALCIUM GLUCONATE [Concomitant]
     Active Substance: CALCIUM GLUCONATE
     Dosage: UNK
     Route: 042
     Dates: start: 20090521
  71. DEXAMETHASONE [Concomitant]
     Active Substance: DEXAMETHASONE
     Dosage: UNK
     Route: 042
     Dates: start: 20090521, end: 20090526
  72. DEXAMETHASONE [Concomitant]
     Active Substance: DEXAMETHASONE
     Dosage: UNK
     Route: 048
     Dates: start: 20090526, end: 20090526
  73. DEXAMETHASONE [Concomitant]
     Active Substance: DEXAMETHASONE
     Dosage: UNK
     Route: 048
     Dates: start: 20090527, end: 20090527
  74. DEXAMETHASONE [Concomitant]
     Active Substance: DEXAMETHASONE
     Dosage: UNK
     Route: 048
     Dates: start: 20090531, end: 20090531
  75. ESMOLOL [Concomitant]
     Active Substance: ESMOLOL HYDROCHLORIDE
     Dosage: UNK
     Route: 042
     Dates: start: 20090521, end: 20090522
  76. FAMOTIDINE [Concomitant]
     Active Substance: FAMOTIDINE
     Dosage: UNK
     Route: 042
     Dates: start: 20090521, end: 20090526
  77. FENTANYL [Concomitant]
     Active Substance: FENTANYL
     Indication: Procedural pain
     Dosage: UNK
     Route: 042
     Dates: start: 20090521, end: 20090521
  78. GLYCOPYRROLATE [Concomitant]
     Active Substance: GLYCOPYRROLATE
     Dosage: UNK
     Route: 042
     Dates: start: 20090521, end: 20090521
  79. HYDRALAZINE [Concomitant]
     Active Substance: HYDRALAZINE HYDROCHLORIDE
     Dosage: UNK
     Route: 042
     Dates: start: 20090521, end: 20090526
  80. DILAUDID [Concomitant]
     Active Substance: HYDROMORPHONE HYDROCHLORIDE
     Indication: Procedural pain
     Dosage: UNK
     Route: 042
     Dates: start: 20090521, end: 20090521
  81. INSULIN LISPRO [Concomitant]
     Active Substance: INSULIN LISPRO
     Dosage: UNK
     Route: 058
     Dates: start: 20090521, end: 20090523
  82. INSULIN LISPRO [Concomitant]
     Active Substance: INSULIN LISPRO
     Dosage: UNK
     Route: 058
     Dates: start: 20090523, end: 20090526
  83. TORADOL [Concomitant]
     Active Substance: KETOROLAC TROMETHAMINE
     Dosage: UNK
     Route: 042
     Dates: start: 20090521, end: 20090524
  84. LOPRESSOR [Concomitant]
     Active Substance: METOPROLOL TARTRATE
     Dosage: UNK
     Route: 042
     Dates: start: 20090521, end: 20090526
  85. METOCLOPRAMIDE [Concomitant]
     Active Substance: METOCLOPRAMIDE
     Dosage: UNK
     Route: 042
     Dates: start: 20090521, end: 20090526
  86. MIDAZOLAM [Concomitant]
     Active Substance: MIDAZOLAM
     Indication: Premedication
     Dosage: UNK
     Route: 042
     Dates: start: 20090521, end: 20090521
  87. NITROPRUSSIDE [Concomitant]
     Active Substance: NITROPRUSSIDE
     Dosage: UNK
     Route: 042
     Dates: start: 20090521, end: 20090522
  88. NITROUS OXIDE [Concomitant]
     Active Substance: NITROUS OXIDE
     Indication: Anaesthesia
     Dosage: UNK
     Route: 042
     Dates: start: 20090521, end: 20090521
  89. ONDANSETRON [Concomitant]
     Active Substance: ONDANSETRON
     Dosage: UNK
     Route: 042
     Dates: start: 20090521, end: 20090524
  90. PROPOFOL [Concomitant]
     Active Substance: PROPOFOL
     Indication: Anaesthesia
     Dosage: UNK
     Route: 042
     Dates: start: 20090521, end: 20090521
  91. REMIFENTANIL [Concomitant]
     Active Substance: REMIFENTANIL
     Dosage: UNK
     Route: 042
     Dates: start: 20090521, end: 20090521
  92. ROCURONIUM [Concomitant]
     Active Substance: ROCURONIUM BROMIDE
     Dosage: UNK
     Route: 042
     Dates: start: 20090521, end: 20090521
  93. SEVOFLURANE [Concomitant]
     Active Substance: SEVOFLURANE
     Indication: Anaesthesia
     Dosage: UNK
     Route: 042
     Dates: start: 20090521, end: 20090521
  94. LIDOCAINE [Concomitant]
     Active Substance: LIDOCAINE
     Dosage: UNK
     Route: 042
     Dates: start: 20090521, end: 20090521
  95. VANCOMYCIN [Concomitant]
     Active Substance: VANCOMYCIN
     Indication: Seroma drainage
     Dosage: UNK
     Route: 042
     Dates: start: 20090521, end: 20090521
  96. VANCOMYCIN [Concomitant]
     Active Substance: VANCOMYCIN
     Dosage: UNK
     Route: 042
     Dates: start: 20090603, end: 20090630
  97. TYLENOL [Concomitant]
     Active Substance: ACETAMINOPHEN
     Indication: Pain
     Dosage: UNK
     Route: 048
     Dates: start: 20090522, end: 20090522
  98. DIAZEPAM [Concomitant]
     Active Substance: DIAZEPAM
     Indication: Muscle spasms
     Dosage: UNK
     Route: 048
     Dates: start: 20090522, end: 20090522
  99. DIPHENHYDRAMINE [Concomitant]
     Active Substance: DIPHENHYDRAMINE
     Dosage: UNK
     Route: 042
     Dates: start: 20090522, end: 20090526
  100. DOCUSATE [Concomitant]
     Active Substance: DOCUSATE
     Dosage: UNK
     Route: 048
     Dates: start: 20090522, end: 20090522
  101. DOCUSATE [Concomitant]
     Active Substance: DOCUSATE
     Dosage: UNK
     Route: 048
     Dates: start: 20090522, end: 20090526
  102. MENTHOL [Concomitant]
     Active Substance: MENTHOL
     Dosage: UNK
     Route: 048
     Dates: start: 20090522, end: 20090526
  103. NALOXONE [Concomitant]
     Active Substance: NALOXONE
     Dosage: UNK
     Route: 042
     Dates: start: 20090522, end: 20090526
  104. MAGNESIUM HYDROXIDE [Concomitant]
     Active Substance: MAGNESIUM HYDROXIDE
     Dosage: UNK
     Route: 048
     Dates: start: 20090524, end: 20090526
  105. SIMETHICONE (DIMETHICONE) [Concomitant]
     Active Substance: DIMETHICONE
     Dosage: UNK
     Route: 048
     Dates: start: 20090524, end: 20090526
  106. DULCOLAX NOS [Concomitant]
     Active Substance: BISACODYL OR DOCUSATE SODIUM
     Dosage: UNK
     Route: 048
     Dates: start: 20090525, end: 20090526
  107. VALIUM [Concomitant]
     Active Substance: DIAZEPAM
     Indication: Muscle spasms
     Dosage: UNK
     Route: 048
     Dates: start: 20090526, end: 20090526
  108. VALIUM [Concomitant]
     Active Substance: DIAZEPAM
     Indication: Pain
     Dosage: UNK
     Route: 048
     Dates: start: 20090527, end: 20090528
  109. VALIUM [Concomitant]
     Active Substance: DIAZEPAM
     Indication: Paraesthesia
     Dosage: UNK
     Route: 048
     Dates: start: 20090527, end: 20220530
  110. VALIUM [Concomitant]
     Active Substance: DIAZEPAM
     Indication: Hypoaesthesia
     Dosage: UNK
     Route: 048
     Dates: start: 20090529, end: 20090529
  111. VALIUM [Concomitant]
     Active Substance: DIAZEPAM
     Indication: Back pain
     Dosage: UNK
     Route: 048
     Dates: start: 20090530, end: 20090601
  112. VALIUM [Concomitant]
     Active Substance: DIAZEPAM
     Dosage: UNK
     Route: 048
     Dates: start: 20090602, end: 20090602
  113. VALIUM [Concomitant]
     Active Substance: DIAZEPAM
     Dosage: UNK
     Route: 048
     Dates: start: 20090606, end: 20090606
  114. VALIUM [Concomitant]
     Active Substance: DIAZEPAM
     Dosage: UNK
     Route: 048
     Dates: start: 20090607, end: 20090607
  115. VALIUM [Concomitant]
     Active Substance: DIAZEPAM
     Dosage: UNK
     Route: 048
     Dates: start: 20090608, end: 20090608
  116. VALIUM [Concomitant]
     Active Substance: DIAZEPAM
     Dosage: UNK
     Route: 048
     Dates: start: 20090609, end: 20090609
  117. VALIUM [Concomitant]
     Active Substance: DIAZEPAM
     Dosage: UNK
     Route: 048
     Dates: start: 20090610, end: 20090612
  118. VALIUM [Concomitant]
     Active Substance: DIAZEPAM
     Dosage: UNK
     Route: 048
     Dates: start: 20090615, end: 20090615
  119. VALIUM [Concomitant]
     Active Substance: DIAZEPAM
     Dosage: UNK
     Route: 048
     Dates: start: 20090617, end: 20090617
  120. VALIUM [Concomitant]
     Active Substance: DIAZEPAM
     Dosage: UNK
     Route: 048
     Dates: start: 20090618, end: 20090618
  121. VALIUM [Concomitant]
     Active Substance: DIAZEPAM
     Dosage: UNK
     Route: 048
     Dates: start: 20090622, end: 20090625
  122. VALIUM [Concomitant]
     Active Substance: DIAZEPAM
     Dosage: UNK
     Route: 048
     Dates: start: 20090626, end: 20090626
  123. VALIUM [Concomitant]
     Active Substance: DIAZEPAM
     Dosage: UNK
     Route: 048
     Dates: start: 20090627, end: 20090627
  124. VALIUM [Concomitant]
     Active Substance: DIAZEPAM
     Dosage: UNK
     Route: 048
     Dates: start: 20090628, end: 20090628
  125. VALIUM [Concomitant]
     Active Substance: DIAZEPAM
     Dosage: UNK
     Route: 048
     Dates: start: 20090629, end: 20090630
  126. VALIUM [Concomitant]
     Active Substance: DIAZEPAM
     Dosage: UNK
     Route: 048
     Dates: start: 20090701, end: 20090701
  127. VALIUM [Concomitant]
     Active Substance: DIAZEPAM
     Dosage: UNK
     Route: 048
     Dates: start: 20090703, end: 20090706
  128. VALIUM [Concomitant]
     Active Substance: DIAZEPAM
     Dosage: UNK
     Route: 048
     Dates: start: 20090712, end: 20090712
  129. VALIUM [Concomitant]
     Active Substance: DIAZEPAM
     Dosage: UNK
     Route: 048
     Dates: start: 20090714, end: 20090714
  130. VALIUM [Concomitant]
     Active Substance: DIAZEPAM
     Dosage: UNK
     Route: 048
     Dates: start: 20090721, end: 20090723
  131. VALIUM [Concomitant]
     Active Substance: DIAZEPAM
     Dosage: UNK
     Route: 048
     Dates: start: 20090724, end: 20090725
  132. VALIUM [Concomitant]
     Active Substance: DIAZEPAM
     Dosage: UNK
     Route: 048
     Dates: start: 20090730, end: 20090731
  133. VALIUM [Concomitant]
     Active Substance: DIAZEPAM
     Dosage: UNK
     Route: 048
     Dates: start: 20090812, end: 20090812
  134. VALIUM [Concomitant]
     Active Substance: DIAZEPAM
     Dosage: UNK
     Route: 048
     Dates: start: 20090814, end: 20090816
  135. VALIUM [Concomitant]
     Active Substance: DIAZEPAM
     Dosage: UNK
     Route: 048
     Dates: start: 20091224, end: 20091224
  136. VALIUM [Concomitant]
     Active Substance: DIAZEPAM
     Dosage: UNK
     Route: 048
     Dates: start: 20100106, end: 20100106
  137. VALIUM [Concomitant]
     Active Substance: DIAZEPAM
     Dosage: UNK
     Route: 048
     Dates: start: 20100121, end: 20100121
  138. VALIUM [Concomitant]
     Active Substance: DIAZEPAM
     Dosage: UNK
     Route: 048
     Dates: start: 20100221, end: 20100221
  139. VALIUM [Concomitant]
     Active Substance: DIAZEPAM
     Dosage: UNK
     Route: 048
     Dates: start: 20100221, end: 20100221
  140. MIRALAX [Concomitant]
     Active Substance: POLYETHYLENE GLYCOL 3350
     Dosage: UNK
     Route: 048
     Dates: start: 20090526, end: 20090526
  141. MIRALAX [Concomitant]
     Active Substance: POLYETHYLENE GLYCOL 3350
     Dosage: UNK
     Route: 048
     Dates: start: 20090530, end: 20090530
  142. TUMS [Concomitant]
     Active Substance: CALCIUM CARBONATE
     Indication: Flatulence
     Dosage: UNK
     Route: 048
     Dates: start: 20090527
  143. TUMS [Concomitant]
     Active Substance: CALCIUM CARBONATE
     Indication: Dyspepsia
     Dosage: UNK
     Route: 048
     Dates: start: 20090528, end: 20090528
  144. TUMS [Concomitant]
     Active Substance: CALCIUM CARBONATE
     Dosage: UNK
     Route: 048
     Dates: start: 20090529, end: 20090530
  145. TUMS [Concomitant]
     Active Substance: CALCIUM CARBONATE
     Dosage: UNK
     Route: 048
     Dates: start: 20090531, end: 20090602
  146. TUMS [Concomitant]
     Active Substance: CALCIUM CARBONATE
     Dosage: UNK
     Route: 048
     Dates: start: 20090606, end: 20090606
  147. TUMS [Concomitant]
     Active Substance: CALCIUM CARBONATE
     Dosage: UNK
     Route: 048
     Dates: start: 20090607, end: 20090607
  148. TUMS [Concomitant]
     Active Substance: CALCIUM CARBONATE
     Dosage: UNK
     Route: 048
     Dates: start: 20090621, end: 20090621
  149. TUMS [Concomitant]
     Active Substance: CALCIUM CARBONATE
     Dosage: UNK
     Route: 048
     Dates: start: 20090714, end: 20090714
  150. TUMS [Concomitant]
     Active Substance: CALCIUM CARBONATE
     Dosage: UNK
     Route: 048
     Dates: start: 20090716, end: 20090716
  151. TUMS [Concomitant]
     Active Substance: CALCIUM CARBONATE
     Dosage: UNK
     Route: 048
     Dates: start: 20100222, end: 20100223
  152. HYDROCODONE [Concomitant]
     Active Substance: HYDROCODONE
     Indication: Pain
     Dosage: UNK
     Route: 048
     Dates: start: 20090606, end: 20090606
  153. HYDROCODONE [Concomitant]
     Active Substance: HYDROCODONE
     Dosage: UNK
     Route: 048
     Dates: start: 20090713, end: 20090713
  154. BACITRACIN [Concomitant]
     Active Substance: BACITRACIN
     Dosage: UNK
     Route: 061
     Dates: start: 20090612, end: 20090612
  155. BACITRACIN [Concomitant]
     Active Substance: BACITRACIN
     Dosage: UNK
     Route: 061
     Dates: start: 20090614, end: 20090614
  156. BACITRACIN [Concomitant]
     Active Substance: BACITRACIN
     Dosage: UNK
     Route: 061
     Dates: start: 20090617, end: 20090618
  157. BACITRACIN [Concomitant]
     Active Substance: BACITRACIN
     Dosage: UNK
     Route: 061
     Dates: start: 20090620, end: 20090620
  158. BACITRACIN [Concomitant]
     Active Substance: BACITRACIN
     Dosage: UNK
     Route: 048
     Dates: start: 20090620, end: 20090621
  159. BACITRACIN [Concomitant]
     Active Substance: BACITRACIN
     Dosage: UNK
     Route: 061
     Dates: start: 20090622, end: 20090622
  160. BACITRACIN [Concomitant]
     Active Substance: BACITRACIN
     Dosage: UNK
     Route: 061
     Dates: start: 20090624, end: 20090624
  161. BACITRACIN [Concomitant]
     Active Substance: BACITRACIN
     Dosage: UNK
     Route: 061
     Dates: start: 20090626, end: 20090626
  162. VITAMIN D [Concomitant]
     Active Substance: VITAMIN D NOS
     Indication: Vitamin D deficiency
     Dosage: UNK
     Route: 048
     Dates: start: 20090817, end: 20091113
  163. VITAMIN D [Concomitant]
     Active Substance: VITAMIN D NOS
     Dosage: UNK
     Route: 048
     Dates: start: 20100119, end: 20100119
  164. VITAMIN D [Concomitant]
     Active Substance: VITAMIN D NOS
     Dosage: UNK
     Route: 048
     Dates: start: 20100122, end: 20100122
  165. VITAMIN D [Concomitant]
     Active Substance: VITAMIN D NOS
     Dosage: UNK
     Route: 048
     Dates: start: 20100201, end: 20100201
  166. VITAMIN D [Concomitant]
     Active Substance: VITAMIN D NOS
     Dosage: UNK
     Route: 048
     Dates: start: 20100330, end: 20100330
  167. VITAMIN D [Concomitant]
     Active Substance: VITAMIN D NOS
     Dosage: UNK
     Route: 048
     Dates: start: 20100330, end: 20100330
  168. VITAMIN D [Concomitant]
     Active Substance: VITAMIN D NOS
     Dosage: UNK
     Route: 048
     Dates: start: 20100401, end: 20100401
  169. VITAMIN D [Concomitant]
     Active Substance: VITAMIN D NOS
     Dosage: UNK
     Route: 048
     Dates: start: 20100402, end: 20100402
  170. VITAMIN D [Concomitant]
     Active Substance: VITAMIN D NOS
     Dosage: UNK
     Route: 048
     Dates: start: 20100403, end: 20100403
  171. VITAMIN D [Concomitant]
     Active Substance: VITAMIN D NOS
     Dosage: UNK
     Route: 048
     Dates: start: 20100416, end: 20100416
  172. VITAMIN D [Concomitant]
     Active Substance: VITAMIN D NOS
     Dosage: UNK
     Dates: start: 20100504, end: 20100504
  173. VITAMIN D [Concomitant]
     Active Substance: VITAMIN D NOS
     Dosage: UNK
     Route: 048
     Dates: start: 20100505, end: 20100505
  174. VITAMIN D [Concomitant]
     Active Substance: VITAMIN D NOS
     Dosage: UNK
     Route: 048
     Dates: start: 20100509, end: 20100509
  175. VITAMIN D [Concomitant]
     Active Substance: VITAMIN D NOS
     Dosage: UNK
     Route: 048
     Dates: start: 20100525, end: 20100525
  176. MENTHOL [Concomitant]
     Active Substance: MENTHOL
     Indication: Upper respiratory tract infection
     Dosage: UNK
     Route: 048
     Dates: start: 20090927, end: 20090927
  177. PHENERGAN W/ CODEINE [Concomitant]
     Active Substance: CODEINE PHOSPHATE\PROMETHAZINE HYDROCHLORIDE
     Indication: Upper respiratory tract infection
     Dosage: UNK
     Route: 050
     Dates: start: 20090929, end: 20091002
  178. PHENERGAN W/ CODEINE [Concomitant]
     Active Substance: CODEINE PHOSPHATE\PROMETHAZINE HYDROCHLORIDE
     Dosage: UNK
     Route: 048
     Dates: start: 20091003, end: 20091006
  179. ZITHROMAX [Concomitant]
     Active Substance: AZITHROMYCIN DIHYDRATE
     Indication: Upper respiratory tract infection
     Dosage: UNK
     Route: 048
     Dates: start: 20090929, end: 20090929
  180. ZITHROMAX [Concomitant]
     Active Substance: AZITHROMYCIN DIHYDRATE
     Dosage: UNK
     Route: 048
     Dates: start: 20090930, end: 20091003
  181. INFLUENZA VIRUS VACCINE [Concomitant]
     Active Substance: INFLUENZA VIRUS VACCINE
     Indication: Influenza immunisation
     Dosage: UNK
     Route: 030
     Dates: start: 20091013, end: 20091013
  182. BIOTENE NOS [Concomitant]
     Active Substance: CETYLPYRIDINIUM CHLORIDE OR SODIUM FLUORIDE OR SODIUM MONOFLUOROPHOSPHATE OR GLUCOSE OXIDASE\LACTOFE
     Indication: Cough
     Dosage: UNK
     Route: 050
     Dates: start: 20091101, end: 20091126
  183. BIOTENE NOS [Concomitant]
     Active Substance: CETYLPYRIDINIUM CHLORIDE OR SODIUM FLUORIDE OR SODIUM MONOFLUOROPHOSPHATE OR GLUCOSE OXIDASE\LACTOFE
     Indication: Dry mouth
     Dosage: UNK
     Route: 048
     Dates: start: 20091208, end: 20100315
  184. BIOTENE NOS [Concomitant]
     Active Substance: CETYLPYRIDINIUM CHLORIDE OR SODIUM FLUORIDE OR SODIUM MONOFLUOROPHOSPHATE OR GLUCOSE OXIDASE\LACTOFE
     Dosage: UNK
     Route: 048
     Dates: start: 20091215, end: 20091215
  185. BIOTENE NOS [Concomitant]
     Active Substance: CETYLPYRIDINIUM CHLORIDE OR SODIUM FLUORIDE OR SODIUM MONOFLUOROPHOSPHATE OR GLUCOSE OXIDASE\LACTOFE
     Dosage: UNK
     Route: 048
     Dates: start: 20091217, end: 20091217
  186. BIOTENE NOS [Concomitant]
     Active Substance: CETYLPYRIDINIUM CHLORIDE OR SODIUM FLUORIDE OR SODIUM MONOFLUOROPHOSPHATE OR GLUCOSE OXIDASE\LACTOFE
     Dosage: UNK
     Route: 048
     Dates: start: 20091223, end: 20091223
  187. BIOTENE NOS [Concomitant]
     Active Substance: CETYLPYRIDINIUM CHLORIDE OR SODIUM FLUORIDE OR SODIUM MONOFLUOROPHOSPHATE OR GLUCOSE OXIDASE\LACTOFE
     Dosage: UNK
     Route: 048
     Dates: start: 20100405, end: 20100501
  188. BIOTENE NOS [Concomitant]
     Active Substance: CETYLPYRIDINIUM CHLORIDE OR SODIUM FLUORIDE OR SODIUM MONOFLUOROPHOSPHATE OR GLUCOSE OXIDASE\LACTOFE
     Dosage: UNK
     Dates: start: 20100510
  189. CODEINE [Concomitant]
     Active Substance: CODEINE
     Indication: Back pain
     Dosage: UNK
     Route: 048
     Dates: start: 20100223, end: 20100223
  190. CODEINE [Concomitant]
     Active Substance: CODEINE
     Dosage: UNK
     Route: 048
     Dates: start: 20100305, end: 20100305
  191. CODEINE [Concomitant]
     Active Substance: CODEINE
     Dosage: UNK
     Route: 048
     Dates: start: 20100718, end: 20100718
  192. CODEINE [Concomitant]
     Active Substance: CODEINE
     Dosage: UNK
     Route: 048
     Dates: start: 20100727, end: 20100727
  193. BENADRYL [Concomitant]
     Active Substance: DIPHENHYDRAMINE HYDROCHLORIDE
     Dosage: UNK
     Route: 048
     Dates: start: 20100917, end: 20100917
  194. TYLENOL WITH CODEINE [Concomitant]
     Active Substance: ACETAMINOPHEN\CODEINE PHOSPHATE
     Indication: Migraine
     Dosage: UNK
     Route: 048
     Dates: start: 20100922, end: 20100923
  195. ERGOCALCIFEROL [Concomitant]
     Active Substance: ERGOCALCIFEROL
     Indication: Vitamin supplementation
     Route: 048
  196. PROAIR HFA [Concomitant]
     Active Substance: ALBUTEROL SULFATE
     Indication: Chronic obstructive pulmonary disease
     Route: 055
  197. QVAR [Concomitant]
     Active Substance: BECLOMETHASONE DIPROPIONATE
     Dosage: UNK
     Route: 050
     Dates: start: 20220915

REACTIONS (3)
  - Upper respiratory tract infection [Recovered/Resolved]
  - Respiratory distress [Recovered/Resolved]
  - Dyspnoea [Recovered/Resolved]

NARRATIVE: CASE EVENT DATE: 20160309
